FAERS Safety Report 4668636-0 (Version None)
Quarter: 2005Q2

REPORT INFORMATION
  Report Type: 
  Country: None (occurrence: None)
  Receive Date: 20050523
  Receipt Date: 20041201
  Transmission Date: 20051028
  Serious: Yes (Death, Other)
  Sender: FDA-Public Use
  Company Number: PHNU2004DE04046

PATIENT
  Sex: Female
  Weight: 55 kg

DRUGS (9)
  1. DILZEM ^GOEDECKE^ [Concomitant]
     Indication: MYOCARDIAL ISCHAEMIA
     Dosage: 1 DF, BID
     Route: 048
  2. METALGIN [Concomitant]
     Indication: PAIN
     Dosage: 20 DRP, QID
     Route: 048
     Dates: start: 20040101
  3. PENTALONG 50 [Concomitant]
     Indication: MYOCARDIAL ISCHAEMIA
     Dosage: 50 MG, BID
     Route: 048
     Dates: start: 20040101
  4. PALLADON [Concomitant]
     Indication: PAIN
     Dosage: 8 MG, TID
     Route: 048
     Dates: start: 20040101
  5. VIOXX [Concomitant]
     Indication: PAIN
     Dosage: 25 MG, QD
     Route: 048
     Dates: start: 20040101
  6. ALKERAN [Concomitant]
     Indication: PLASMACYTOMA
     Dosage: 20 MG, UNK
     Route: 042
     Dates: start: 20030901, end: 20040201
  7. PREDNISOLONE [Concomitant]
     Indication: PLASMACYTOMA
     Dosage: 100 MG, UNK
     Route: 042
     Dates: start: 20030901, end: 20040201
  8. CHEMOTHERAPEUTICS,OTHER [Concomitant]
     Indication: PLASMACYTOMA
     Route: 065
  9. ZOMETA [Suspect]
     Indication: PLASMACYTOMA
     Dosage: 4 MG, QMO
     Dates: start: 20021101, end: 20041001

REACTIONS (3)
  - BONE DISORDER [None]
  - MALIGNANT NEOPLASM PROGRESSION [None]
  - OSTEONECROSIS [None]
